FAERS Safety Report 8393357-0 (Version None)
Quarter: 2012Q2

REPORT INFORMATION
  Report Type: 
  Country: None (occurrence: None)
  Receive Date: 20120529
  Receipt Date: 20120521
  Transmission Date: 20120825
  Serious: Yes (Other)
  Sender: FDA-Public Use
  Company Number: FR-FRI-1000030663

PATIENT
  Age: 44 Year
  Sex: Male

DRUGS (6)
  1. METHADONE HCL [Concomitant]
     Dosage: 160 MG
  2. BENZODIAZEPINE NOS [Concomitant]
  3. BISOPROLOL FUMARATE [Suspect]
  4. NEBIVOLOL [Suspect]
  5. PAROXETINE [Concomitant]
     Dosage: 20 MG
  6. METHADONE HCL [Concomitant]
     Dosage: 250 MG

REACTIONS (2)
  - VENTRICULAR TACHYCARDIA [None]
  - BRADYCARDIA [None]
